FAERS Safety Report 7701648-9 (Version None)
Quarter: 2011Q3

REPORT INFORMATION
  Report Type: 
  Country: None (occurrence: None)
  Receive Date: 20110822
  Receipt Date: 20110815
  Transmission Date: 20111222
  Serious: Yes (Hospitalization, Other)
  Sender: FDA-Public Use
  Company Number: US-BAYER-201040092NA

PATIENT
  Age: 23 Year
  Sex: Female
  Weight: 75 kg

DRUGS (2)
  1. YASMIN [Suspect]
     Indication: PRODUCT USED FOR UNKNOWN INDICATION
     Dosage: UNK
  2. YAZ [Suspect]
     Indication: CONTRACEPTION
     Dosage: UNK

REACTIONS (4)
  - CHEST PAIN [None]
  - ABORTION INDUCED [None]
  - PULMONARY EMBOLISM [None]
  - PAIN [None]
